FAERS Safety Report 18439883 (Version 1)
Quarter: 2020Q4

REPORT INFORMATION
  Report Type: Spontaneous
  Country: US (occurrence: US)
  Receive Date: 20201028
  Receipt Date: 20201028
  Transmission Date: 20210114
  Serious: No
  Sender: FDA-Public Use
  Company Number: None

PATIENT
  Age: 75 Year
  Sex: Female
  Weight: 91.9 kg

DRUGS (3)
  1. REMDESIVIR. [Suspect]
     Active Substance: REMDESIVIR
     Indication: COVID-19
     Route: 042
     Dates: start: 20201026, end: 20201028
  2. AZITHROMYCIN 500 MG IV QD [Concomitant]
     Dates: start: 20201026, end: 20201028
  3. CEFTRIAXONE 2000 MG IV DAILY [Concomitant]
     Dates: start: 20201026

REACTIONS (2)
  - Alanine aminotransferase increased [None]
  - Glomerular filtration rate decreased [None]

NARRATIVE: CASE EVENT DATE: 20201028
